FAERS Safety Report 12531193 (Version 1)
Quarter: 2016Q3

REPORT INFORMATION
  Report Type: Spontaneous
  Country: US (occurrence: None)
  Receive Date: 20160705
  Receipt Date: 20160705
  Transmission Date: 20161109
  Serious: Yes (Other)
  Sender: FDA-Public Use
  Company Number: None

PATIENT
  Age: 37 Year
  Sex: Female
  Weight: 63.5 kg

DRUGS (1)
  1. SODIUM BICARB. GLASS ABBOJCET SYRINGE HOSPIRA INC. [Suspect]
     Active Substance: SODIUM BICARBONATE

REACTIONS (3)
  - Syringe issue [None]
  - Limb injury [None]
  - Accidental exposure to product [None]

NARRATIVE: CASE EVENT DATE: 20151110
